FAERS Safety Report 20321345 (Version 7)
Quarter: 2022Q1

REPORT INFORMATION
  Report Type: Report from Study
  Country: CA (occurrence: None)
  Receive Date: 20220111
  Receipt Date: 20220321
  Transmission Date: 20220423
  Serious: Yes (Other)
  Sender: FDA-Public Use
  Company Number: CA-Eisai Medical Research-EC-2022-106459

PATIENT
  Age: 64 Year
  Sex: Female
  Weight: 86.7 kg

DRUGS (13)
  1. LENVATINIB [Suspect]
     Active Substance: LENVATINIB
     Indication: Colorectal cancer metastatic
     Route: 048
     Dates: start: 20210917, end: 20220103
  2. PEMBROLIZUMAB [Suspect]
     Active Substance: PEMBROLIZUMAB
     Indication: Colorectal cancer metastatic
     Route: 041
     Dates: start: 20210917, end: 20211029
  3. PEMBROLIZUMAB [Suspect]
     Active Substance: PEMBROLIZUMAB
     Route: 041
     Dates: start: 20211210, end: 20211210
  4. SENOKOT [Concomitant]
     Active Substance: SENNOSIDES
     Dates: start: 201901
  5. BISOPROLOL [Concomitant]
     Active Substance: BISOPROLOL
     Dates: start: 201201
  6. MAGNESIUM [Concomitant]
     Active Substance: MAGNESIUM
     Dates: start: 201601
  7. IMODIUM [Concomitant]
     Active Substance: LOPERAMIDE HYDROCHLORIDE
     Dates: start: 201911
  8. TYLENOL [Concomitant]
     Active Substance: ACETAMINOPHEN
     Dates: start: 202007
  9. MIRTAZAPINE [Concomitant]
     Active Substance: MIRTAZAPINE
     Dates: start: 202105
  10. HYDROMORPHONE [Concomitant]
     Active Substance: HYDROMORPHONE
     Dates: start: 202108
  11. HYDROCORTISONE ACETATE [Concomitant]
     Active Substance: HYDROCORTISONE ACETATE
     Dates: start: 202108
  12. MELOXICAM [Concomitant]
     Active Substance: MELOXICAM
  13. ELIQUIS [Concomitant]
     Active Substance: APIXABAN
     Dates: start: 20211201

REACTIONS (1)
  - Diarrhoea [Recovered/Resolved]

NARRATIVE: CASE EVENT DATE: 20220103
